FAERS Safety Report 21954573 (Version 1)
Quarter: 2023Q1

REPORT INFORMATION
  Report Type: Spontaneous
  Country: US (occurrence: US)
  Receive Date: 20230205
  Receipt Date: 20230205
  Transmission Date: 20230417
  Serious: No
  Sender: FDA-Public Use
  Company Number: US-JNJFOC-20230204800

PATIENT
  Age: 6 Decade
  Sex: Female

DRUGS (4)
  1. STELARA [Suspect]
     Active Substance: USTEKINUMAB
     Indication: Psoriasis
     Route: 058
     Dates: start: 202203
  2. STELARA [Suspect]
     Active Substance: USTEKINUMAB
  3. CORTISONE [Suspect]
     Active Substance: CORTISONE
     Indication: Back disorder
     Route: 065
  4. CORTISONE [Suspect]
     Active Substance: CORTISONE
     Indication: Arthropathy

REACTIONS (3)
  - Headache [Unknown]
  - Back disorder [Unknown]
  - Arthropathy [Unknown]
